FAERS Safety Report 6256425-5 (Version None)
Quarter: 2009Q3

REPORT INFORMATION
  Report Type: 
  Country: None (occurrence: None)
  Receive Date: 20090701
  Receipt Date: 20090701
  Transmission Date: 20100115
  Serious: Yes (Hospitalization)
  Sender: FDA-Public Use
  Company Number: None

PATIENT
  Age: 77 Year
  Sex: Male

DRUGS (15)
  1. FUROSEMIDE [Suspect]
     Indication: CARDIAC FAILURE CONGESTIVE
     Dosage: 80MG DAILY PO
     Route: 048
     Dates: start: 20090501, end: 20090505
  2. DIGOXIN [Concomitant]
  3. WARFARIN SODIUM [Concomitant]
  4. NEXIUM [Concomitant]
  5. ATACAND [Concomitant]
  6. FINASTERIDE [Concomitant]
  7. ISORDIL [Concomitant]
  8. COLESTIPOL HYDROCHLORIDE [Concomitant]
  9. NITROGLYCERIN [Concomitant]
  10. TOPROL-XL [Concomitant]
  11. ALLOPURINOL [Concomitant]
  12. M.V.I. [Concomitant]
  13. ADVAIR HFA [Concomitant]
  14. SPIRIVA [Concomitant]
  15. ASPIRIN [Concomitant]

REACTIONS (5)
  - CONSTIPATION [None]
  - DIZZINESS [None]
  - HYPERKALAEMIA [None]
  - RENAL FAILURE ACUTE [None]
  - RENAL TUBULAR NECROSIS [None]
